FAERS Safety Report 13349697 (Version 1)
Quarter: 2017Q1

REPORT INFORMATION
  Report Type: Spontaneous
  Country: US (occurrence: US)
  Receive Date: 20170318
  Receipt Date: 20170318
  Transmission Date: 20170429
  Serious: Yes (Disabling)
  Sender: FDA-Public Use
  Company Number: None

PATIENT
  Age: 50 Year
  Sex: Male
  Weight: 79.2 kg

DRUGS (3)
  1. LOSARTIN [Concomitant]
     Active Substance: LOSARTAN
  2. PERCOCET [Concomitant]
     Active Substance: ACETAMINOPHEN\OXYCODONE HYDROCHLORIDE
  3. TRESIBA [Suspect]
     Active Substance: INSULIN DEGLUDEC
     Indication: TYPE 2 DIABETES MELLITUS
     Dosage: ?          QUANTITY:1 INJECTION(S);?
     Route: 058
     Dates: start: 20161215, end: 20170312

REACTIONS (4)
  - Nausea [None]
  - Malaise [None]
  - Blood pressure abnormal [None]
  - Impaired work ability [None]

NARRATIVE: CASE EVENT DATE: 20170101
